FAERS Safety Report 21434654 (Version 1)
Quarter: 2022Q4

REPORT INFORMATION
  Report Type: Report from Study
  Country: CO (occurrence: CO)
  Receive Date: 20221010
  Receipt Date: 20221010
  Transmission Date: 20230112
  Serious: Yes (Other)
  Sender: FDA-Public Use
  Company Number: CO-ASTELLAS-2022US035388

PATIENT
  Age: 17 Year
  Sex: Male

DRUGS (1)
  1. TACROLIMUS [Suspect]
     Active Substance: TACROLIMUS
     Indication: Renal transplant
     Dosage: 9 MG, ONCE DAILY (5MG, 3 MG AND 1MG CAPSULE)
     Route: 048
     Dates: start: 20161030, end: 20220913

REACTIONS (3)
  - Kidney transplant rejection [Recovering/Resolving]
  - Kidney transplant rejection [Recovering/Resolving]
  - Toxicity to various agents [Recovering/Resolving]

NARRATIVE: CASE EVENT DATE: 20210101
